FAERS Safety Report 8582875-8 (Version None)
Quarter: 2012Q3

REPORT INFORMATION
  Report Type: 
  Country: None (occurrence: None)
  Receive Date: 20120809
  Receipt Date: 20120807
  Transmission Date: 20120928
  Serious: Yes (Other)
  Sender: FDA-Public Use
  Company Number: US-PFIZER INC-2012192680

PATIENT
  Age: 55 Year
  Sex: Female
  Weight: 104 kg

DRUGS (1)
  1. PREMPRO [Suspect]
     Indication: HOT FLUSH
     Dosage: 0.45/1.5 MG, 1X/DAY
     Route: 048

REACTIONS (1)
  - CARDIAC DISORDER [None]
